FAERS Safety Report 11211823 (Version 2)
Quarter: 2015Q3

REPORT INFORMATION
  Report Type: Spontaneous
  Country: US (occurrence: US)
  Receive Date: 20150623
  Receipt Date: 20150715
  Transmission Date: 20151125
  Serious: Yes (Other)
  Sender: FDA-Public Use
  Company Number: US-BEH-2015051867

PATIENT
  Sex: Male

DRUGS (1)
  1. HIZENTRA [Suspect]
     Active Substance: HUMAN IMMUNOGLOBULIN G
     Indication: PRODUCT USED FOR UNKNOWN INDICATION

REACTIONS (8)
  - Infusion site bruising [Unknown]
  - Lung disorder [Unknown]
  - Administration site reaction [Unknown]
  - Infusion site nodule [Unknown]
  - Nephrolithiasis [Unknown]
  - Infection [Unknown]
  - Infusion site pain [Unknown]
  - Cough [Unknown]
